FAERS Safety Report 4900342-7 (Version None)
Quarter: 2006Q1

REPORT INFORMATION
  Report Type: 
  Country: None (occurrence: None)
  Receive Date: 20060203
  Receipt Date: 20060128
  Transmission Date: 20060701
  Serious: Yes (Other)
  Sender: FDA-Public Use
  Company Number: GB-GLAXOSMITHKLINE-B0408297A

PATIENT
  Age: 14 Year
  Sex: Male
  Weight: 5 kg

DRUGS (3)
  1. AMOXICILLIN [Suspect]
     Indication: LOWER RESPIRATORY TRACT INFECTION
     Route: 065
  2. ENBREL [Concomitant]
     Indication: JUVENILE ARTHRITIS
     Dosage: 25MG TWO TIMES PER WEEK
     Route: 058
     Dates: start: 20020401, end: 20051212
  3. PARACETAMOL [Concomitant]
     Route: 048
     Dates: end: 20060105

REACTIONS (1)
  - BLOOD POTASSIUM INCREASED [None]
